FAERS Safety Report 7903501-4 (Version None)
Quarter: 2011Q4

REPORT INFORMATION
  Report Type: 
  Country: None (occurrence: None)
  Receive Date: 20111107
  Receipt Date: 20111028
  Transmission Date: 20120403
  Serious: Yes (Hospitalization)
  Sender: FDA-Public Use
  Company Number: CPI 2771

PATIENT
  Age: 58 Year
  Sex: Male

DRUGS (5)
  1. ACETYLCYSTEINE [Suspect]
     Dosage: 600 MG TID
  2. AZATHIOPRINE [Concomitant]
  3. ROSUVASTATIN [Concomitant]
  4. ASPIRIN [Concomitant]
  5. REGADENSON [Concomitant]

REACTIONS (9)
  - CARDIAC ARREST [None]
  - DYSPNOEA [None]
  - LOSS OF CONSCIOUSNESS [None]
  - ELECTROCARDIOGRAM PR PROLONGATION [None]
  - NAUSEA [None]
  - ATRIOVENTRICULAR BLOCK [None]
  - DIZZINESS [None]
  - SINUS ARREST [None]
  - HYPERHIDROSIS [None]
